FAERS Safety Report 6521557-0 (Version None)
Quarter: 2009Q4

REPORT INFORMATION
  Report Type: 
  Country: None (occurrence: None)
  Receive Date: 20091224
  Receipt Date: 20091215
  Transmission Date: 20100525
  Serious: Yes (Hospitalization)
  Sender: FDA-Public Use
  Company Number: 2009003892

PATIENT
  Age: 70 Year
  Sex: Female

DRUGS (33)
  1. ERLOTINIB HYDROCHLORIDE [Suspect]
     Indication: NON-SMALL CELL LUNG CANCER
     Dosage: (150 MG,QD),ORAL
     Route: 048
     Dates: start: 20091120, end: 20091215
  2. ADVIL [Concomitant]
  3. ASPIRIN [Concomitant]
  4. ASFIX [Concomitant]
  5. ATENOLOL [Concomitant]
  6. DEXAMETHASONE TAB [Concomitant]
  7. DIFLUCAN [Concomitant]
  8. DULCOLAX [Concomitant]
  9. OXYCONTIN [Concomitant]
  10. PREMARIN [Concomitant]
  11. TALWIN [Concomitant]
  12. ZANTAC 150 [Concomitant]
  13. EXTRA STRENGTH TYLENOL [Concomitant]
  14. ACETAMINOPHEN [Concomitant]
  15. ACETAMINOPHEN AND HYDROCODONE BITARTRATE [Concomitant]
  16. ACYCLOVIR [Concomitant]
  17. ALBUTEROL [Concomitant]
  18. ALPRAZOLAM [Concomitant]
  19. ATORVASTATIN CALCIUM [Concomitant]
  20. DESONIDE [Concomitant]
  21. DEXTROSE [Concomitant]
  22. ENOXAPARIN SODIUM [Concomitant]
  23. IPRATROPIUM BROMIDE [Concomitant]
  24. LEVETIRACETAM [Concomitant]
  25. LISINOPRIL [Concomitant]
  26. METOPROLOL TARTRATE [Concomitant]
  27. MORPHINE [Concomitant]
  28. NIFEDIPINE [Concomitant]
  29. ONDANSETRON HYDROCHLORIDE [Concomitant]
  30. PANTOPRAZOLE SODIUM [Concomitant]
  31. SENNOSIDES -DOCUSATE SODIUM [Concomitant]
  32. SODIUM CHLORIDE 0.9% [Concomitant]
  33. ZINC OXIDE (ZINC OXIDE) [Concomitant]

REACTIONS (13)
  - AORTIC ARTERIOSCLEROSIS [None]
  - ATELECTASIS [None]
  - DEHYDRATION [None]
  - DIZZINESS [None]
  - DYSPNOEA EXERTIONAL [None]
  - HYPERGLYCAEMIA [None]
  - HYPERHIDROSIS [None]
  - MALIGNANT NEOPLASM PROGRESSION [None]
  - NON-SMALL CELL LUNG CANCER [None]
  - ORAL HERPES [None]
  - PRESYNCOPE [None]
  - PULMONARY EMBOLISM [None]
  - PULMONARY HYPERTENSION [None]
